FAERS Safety Report 21188183 (Version 1)
Quarter: 2022Q3

REPORT INFORMATION
  Report Type: Spontaneous
  Country: PR (occurrence: PR)
  Receive Date: 20220809
  Receipt Date: 20220809
  Transmission Date: 20221026
  Serious: Yes (Other)
  Sender: FDA-Public Use
  Company Number: PR-UNITED THERAPEUTICS-UNT-2022-014520

PATIENT
  Sex: Female

DRUGS (2)
  1. TYVASO [Suspect]
     Active Substance: TREPROSTINIL
     Indication: Pulmonary arterial hypertension
     Dosage: UNK
     Dates: start: 20210801
  2. TYVASO [Suspect]
     Active Substance: TREPROSTINIL
     Dosage: 54 ?G, QID

REACTIONS (7)
  - Lip neoplasm malignant stage unspecified [Not Recovered/Not Resolved]
  - Dyspnoea [Unknown]
  - COVID-19 [Recovered/Resolved]
  - Sluggishness [Unknown]
  - Fatigue [Unknown]
  - Cough [Unknown]
  - Throat irritation [Unknown]
